FAERS Safety Report 7580908-9 (Version None)
Quarter: 2011Q2

REPORT INFORMATION
  Report Type: 
  Country: None (occurrence: None)
  Receive Date: 20110629
  Receipt Date: 20110621
  Transmission Date: 20111010
  Serious: Yes (Hospitalization, Disabling)
  Sender: FDA-Public Use
  Company Number: JP-MERCK-1105USA01234

PATIENT
  Age: 87 Year
  Sex: Female
  Weight: 23 kg

DRUGS (14)
  1. PREDNISOLONE [Suspect]
     Indication: POLYMYALGIA RHEUMATICA
     Route: 048
     Dates: start: 20050704
  2. MUSCALM [Concomitant]
     Route: 065
  3. PHENOBARBITAL [Concomitant]
     Route: 048
  4. ROXATIDINE ACETATE HCL [Suspect]
     Route: 048
  5. HICEE [Concomitant]
     Route: 048
  6. FOSAMAX [Suspect]
     Route: 048
     Dates: start: 20050704
  7. ALLOPURINOL [Concomitant]
     Route: 048
  8. MUCODYNE [Concomitant]
     Route: 048
  9. CLARITHROMYCIN [Concomitant]
     Indication: ATYPICAL MYCOBACTERIAL INFECTION
     Route: 048
  10. OLMESARTAN MEDOXOMIL [Concomitant]
     Indication: HYPERTENSION
     Route: 048
  11. SELBEX [Concomitant]
     Route: 048
  12. FOSAMAX [Suspect]
     Indication: OSTEOPOROSIS PROPHYLAXIS
     Route: 048
     Dates: end: 20101203
  13. NORVASC [Concomitant]
     Indication: HYPERTENSION
     Route: 048
  14. TRICHLORMETHIAZIDE [Concomitant]
     Indication: HYPERTENSION
     Route: 048

REACTIONS (3)
  - LOW TURNOVER OSTEOPATHY [None]
  - FEMUR FRACTURE [None]
  - FRACTURE DELAYED UNION [None]
